FAERS Safety Report 11117532 (Version 1)
Quarter: 2015Q2

REPORT INFORMATION
  Report Type: Spontaneous
  Country: GB (occurrence: GB)
  Receive Date: 20150517
  Receipt Date: 20150517
  Transmission Date: 20150821
  Serious: Yes (Hospitalization, Other)
  Sender: FDA-Public Use
  Company Number: PHHY2015GB057082

PATIENT
  Age: 86 Year
  Sex: Female

DRUGS (1)
  1. PREDNISOLONE. [Suspect]
     Active Substance: PREDNISOLONE
     Indication: IMMUNOSUPPRESSION
     Route: 065

REACTIONS (5)
  - Rash pustular [Recovered/Resolved]
  - Mycobacterium chelonae infection [Recovered/Resolved]
  - Fall [Recovered/Resolved]
  - Skin ulcer [Recovered/Resolved]
  - Nodule [Recovered/Resolved]
